FAERS Safety Report 6378364-1 (Version None)
Quarter: 2009Q3

REPORT INFORMATION
  Report Type: 
  Country: None (occurrence: None)
  Receive Date: 20090925
  Receipt Date: 20090715
  Transmission Date: 20100115
  Serious: Yes (Other)
  Sender: FDA-Public Use
  Company Number: US-ASTRAZENECA-2007UW11856

PATIENT
  Age: 47 Year
  Sex: Female
  Weight: 102.1 kg

DRUGS (6)
  1. SEROQUEL [Suspect]
     Indication: DEPRESSION
     Route: 048
     Dates: start: 19950101
  2. GEODON [Concomitant]
  3. ZYPREXA [Concomitant]
  4. WELLBUTRIN [Concomitant]
  5. TRAZODONE [Concomitant]
  6. REMERON [Concomitant]

REACTIONS (3)
  - DIABETES MELLITUS [None]
  - KETOACIDOSIS [None]
  - PANCREATITIS [None]
